FAERS Safety Report 15776506 (Version 1)
Quarter: 2018Q4

REPORT INFORMATION
  Report Type: Spontaneous
  Country: US (occurrence: US)
  Receive Date: 20181231
  Receipt Date: 20181231
  Transmission Date: 20190205
  Serious: Yes (Death, Hospitalization, Other)
  Sender: FDA-Public Use
  Company Number: US-BAYER-2018-242902

PATIENT
  Age: 34 Year
  Sex: Male

DRUGS (19)
  1. DACLATASVIR. [Suspect]
     Active Substance: DACLATASVIR
     Indication: HEPATITIS C
     Dosage: 90 UNK, QD
     Route: 065
     Dates: start: 20180703, end: 20180924
  2. PYRIDOXINE [Concomitant]
     Active Substance: PYRIDOXINE
     Dosage: 150 MG
  3. ABACAVIR. [Concomitant]
     Active Substance: ABACAVIR
     Dosage: UNK
     Dates: start: 20161201
  4. AVELOX [Suspect]
     Active Substance: MOXIFLOXACIN HYDROCHLORIDE
     Indication: TUBERCULOSIS
     Dosage: 400 UNK, QD
     Route: 065
     Dates: start: 20180514
  5. CLOFAZIMINE [Suspect]
     Active Substance: CLOFAZIMINE
     Indication: TUBERCULOSIS
     Dosage: 200/100 UNK, QD
     Route: 065
     Dates: start: 20180514
  6. NEVIRAPINE. [Concomitant]
     Active Substance: NEVIRAPINE
     Dosage: UNK
     Dates: start: 20161201
  7. OMEPRAZOLE. [Concomitant]
     Active Substance: OMEPRAZOLE
     Dosage: UNK
  8. GABAPENTINUM [Concomitant]
     Dosage: UNK
  9. ESFOLEN [Concomitant]
     Dosage: UNK
  10. LORAZEPAM. [Concomitant]
     Active Substance: LORAZEPAM
     Dosage: UNK
  11. FLUCONAZOLE. [Concomitant]
     Active Substance: FLUCONAZOLE
     Dosage: UNK
  12. IMIPENEM [Suspect]
     Active Substance: IMIPENEM
     Indication: TUBERCULOSIS
     Dosage: 2000 UNK, QD
     Route: 065
     Dates: start: 20180514, end: 20181003
  13. DELAMANID [Suspect]
     Active Substance: DELAMANID
     Indication: TUBERCULOSIS
     Dosage: 200 UNK, QD
     Route: 065
     Dates: start: 20180514
  14. LAMIVUDINE. [Concomitant]
     Active Substance: LAMIVUDINE
     Dosage: UNK
     Dates: start: 20161201
  15. METOCLOPRAMIDE. [Concomitant]
     Active Substance: METOCLOPRAMIDE
     Dosage: UNK
  16. AMOXICILLIN TRIHYDRATE AND CLAVULANATE POTASSIUM [Suspect]
     Active Substance: AMOXICILLIN\CLAVULANATE POTASSIUM
     Indication: TUBERCULOSIS
     Dosage: 2000 UNK, QD
     Route: 065
     Dates: start: 20180514, end: 20181003
  17. SOFOSBUVIR [Suspect]
     Active Substance: SOFOSBUVIR
     Indication: HEPATITIS C
     Dosage: 400 UNK, QD
     Route: 065
     Dates: start: 20180703, end: 20180924
  18. SENADEXIN [SENNOSIDE A+B] [Concomitant]
     Dosage: UNK
  19. PROTIONAMIDE [Suspect]
     Active Substance: PROTIONAMIDE
     Indication: TUBERCULOSIS
     Dosage: 750 UNK, QD
     Route: 065
     Dates: start: 20180514

REACTIONS (22)
  - Nausea [Unknown]
  - Blood pressure decreased [Unknown]
  - Refusal of treatment by patient [Unknown]
  - Gastritis [Unknown]
  - Vomiting [Unknown]
  - Iridocyclitis [Unknown]
  - Duodenitis [Unknown]
  - Gamma-glutamyltransferase increased [Unknown]
  - Chronic hepatitis C [Unknown]
  - Neuropathy peripheral [Unknown]
  - Malaise [Unknown]
  - Platelet count increased [Unknown]
  - Blindness [Unknown]
  - Oesophagitis [Unknown]
  - Pulmonary tuberculosis [Unknown]
  - Oral candidiasis [Unknown]
  - Alanine aminotransferase increased [Unknown]
  - Hypophagia [Unknown]
  - HIV infection [Fatal]
  - Cachexia [Unknown]
  - Treatment noncompliance [Unknown]
  - Aspartate aminotransferase increased [Unknown]

NARRATIVE: CASE EVENT DATE: 20180920
